FAERS Safety Report 18097483 (Version 3)
Quarter: 2020Q3

REPORT INFORMATION
  Report Type: Spontaneous
  Country: FR (occurrence: FR)
  Receive Date: 20200731
  Receipt Date: 20200818
  Transmission Date: 20201103
  Serious: Yes (Other)
  Sender: FDA-Public Use
  Company Number: FR-ACCORD-193815

PATIENT
  Age: 50 Year
  Sex: Male

DRUGS (8)
  1. ISAVUCONAZOLE [Interacting]
     Active Substance: ISAVUCONAZOLE
     Indication: PHAEOHYPHOMYCOSIS
     Dosage: LOADING DOSE
     Route: 048
  2. ISAVUCONAZOLE [Interacting]
     Active Substance: ISAVUCONAZOLE
     Indication: FUNGAL INFECTION
     Route: 048
     Dates: start: 20170505, end: 20180815
  3. TACROLIMUS. [Suspect]
     Active Substance: TACROLIMUS
     Indication: IMMUNOSUPPRESSANT DRUG THERAPY
     Dosage: 2 MG THE MORNING AND 2 MG THE EVENING
     Route: 048
     Dates: start: 201611, end: 201705
  4. MYCOPHENOLATE [Concomitant]
     Active Substance: MYCOPHENOLIC ACID
     Indication: IMMUNOSUPPRESSANT DRUG THERAPY
     Dosage: EVERY MORNING, NOON AND EVENING
     Route: 048
     Dates: start: 201611
  5. PREDNISONE. [Concomitant]
     Active Substance: PREDNISONE
     Indication: IMMUNOSUPPRESSANT DRUG THERAPY
     Dosage: EVERY MORNING
     Route: 048
     Dates: start: 201611
  6. ISAVUCONAZOLE [Interacting]
     Active Substance: ISAVUCONAZOLE
     Indication: PHAEOHYPHOMYCOSIS
     Dosage: EVERY 8 HOURS 6 TIMES, LOADING DOSE
     Route: 048
     Dates: start: 20170503, end: 20170505
  7. TERBINAFINE/TERBINAFINE HYDROCHLORIDE [Concomitant]
     Active Substance: TERBINAFINE HYDROCHLORIDE
     Indication: PHAEOHYPHOMYCOSIS
     Route: 061
     Dates: start: 201705
  8. TERBINAFINE. [Concomitant]
     Active Substance: TERBINAFINE
     Indication: FUNGAL INFECTION
     Route: 061

REACTIONS (4)
  - Drug level increased [Unknown]
  - Drug interaction [Unknown]
  - Renal impairment [Unknown]
  - Diarrhoea [Recovered/Resolved]

NARRATIVE: CASE EVENT DATE: 201705
